FAERS Safety Report 9472492 (Version 2)
Quarter: 2013Q3

REPORT INFORMATION
  Report Type: Spontaneous
  Country: BR (occurrence: BR)
  Receive Date: 20130823
  Receipt Date: 20130823
  Transmission Date: 20140515
  Serious: Yes (Other)
  Sender: FDA-Public Use
  Company Number: PHHY2012BR112714

PATIENT
  Age: 81 Year
  Sex: Female

DRUGS (7)
  1. RASILEZ AMLO [Suspect]
     Indication: HYPERTENSION
     Dosage: 1 DF (300 MG ALISK/5MG AMLO) DAILY
     Route: 048
  2. RASILEZ AMLO [Suspect]
     Dosage: 1 DF (300 MG ALISK/10MG AMLO) DAILY
     Route: 048
     Dates: start: 201209
  3. RASILEZ AMLO [Suspect]
     Dosage: 1 DF (300 MG ALISK/5MG AMLO) DAILY
     Route: 048
     Dates: start: 201211
  4. DIOVAN [Suspect]
     Dosage: 160 MG, UNK
  5. DIOVAN AMLO FIX [Suspect]
     Dosage: 1 DF, (320 MG VALS/ 5 MG AMLO)
  6. RASILEZ [Suspect]
     Indication: HYPERTENSION
     Dosage: 300 MG, QD
     Route: 048
  7. NATRILIX [Concomitant]
     Indication: HYPERTENSION
     Dosage: 1.5 MG, DAILY
     Route: 048

REACTIONS (3)
  - Filariasis [Recovering/Resolving]
  - Pain in extremity [Recovering/Resolving]
  - Local swelling [Unknown]
